FAERS Safety Report 8124704-2 (Version None)
Quarter: 2012Q1

REPORT INFORMATION
  Report Type: 
  Country: None (occurrence: None)
  Receive Date: 20120209
  Receipt Date: 20120130
  Transmission Date: 20120608
  Serious: Yes (Hospitalization)
  Sender: FDA-Public Use
  Company Number: AU-MPIJNJ-2011-04879

PATIENT

DRUGS (37)
  1. FENTANYL CITRATE [Concomitant]
     Indication: PAIN
     Dosage: 100 MG, UNK
     Route: 048
     Dates: start: 20100111
  2. DIPROSONE                          /00008504/ [Concomitant]
     Dosage: UNK
     Route: 061
     Dates: start: 20110914
  3. AMPHOTERICIN B [Concomitant]
     Indication: ANTIFUNGAL TREATMENT
     Dosage: UNK
     Route: 048
     Dates: start: 20111012, end: 20111024
  4. VELCADE [Suspect]
     Indication: MULTIPLE MYELOMA
     Dosage: 1.8 MG, UNK
     Route: 065
     Dates: start: 20110930, end: 20111117
  5. DEXAMETHASONE [Suspect]
     Indication: MULTIPLE MYELOMA
     Dosage: 12 MG, UNK
     Route: 065
     Dates: start: 20110930, end: 20111118
  6. MAGNESIUM [Concomitant]
     Indication: SUPPLEMENTATION THERAPY
     Dosage: UNK
     Route: 048
     Dates: start: 20110926
  7. PHOSPHATE                          /01318702/ [Concomitant]
     Indication: SUPPLEMENTATION THERAPY
     Dosage: UNK
     Route: 042
     Dates: start: 20111012, end: 20111014
  8. CYCLIZINE [Concomitant]
     Indication: ANTIEMETIC SUPPORTIVE CARE
     Dosage: UNK
     Route: 048
     Dates: start: 20111003
  9. BACLOFEN [Concomitant]
     Indication: MUSCLE RELAXANT THERAPY
     Dosage: UNK
     Route: 048
     Dates: start: 20111027
  10. ACETAMINOPHEN [Concomitant]
     Indication: ANALGESIC THERAPY
     Dosage: UNK
     Route: 048
     Dates: start: 20111031
  11. PANADOL                            /00020001/ [Concomitant]
     Indication: PAIN
     Dosage: 10 MG, UNK
     Route: 048
     Dates: start: 20100114
  12. CHOLECALCIFEROL [Concomitant]
     Indication: SUPPLEMENTATION THERAPY
     Dosage: UNK
     Route: 048
     Dates: start: 20110803
  13. DAPSONE [Concomitant]
     Indication: INFECTION PROPHYLAXIS
     Dosage: UNK
     Route: 048
     Dates: start: 20110711
  14. POTASSIUM CHLORIDE [Concomitant]
     Indication: SUPPLEMENTATION THERAPY
     Dosage: UNK
     Route: 042
     Dates: start: 20111012, end: 20111014
  15. ROMIDEPSIN [Suspect]
     Indication: MULTIPLE MYELOMA
     Dosage: 18.5 MG, UNK
     Route: 065
     Dates: start: 20110930, end: 20111114
  16. GABAPENTIN [Concomitant]
     Indication: PAIN
     Dosage: UNK
     Route: 048
     Dates: start: 20110930, end: 20111017
  17. VALGANCICLOVIR [Concomitant]
     Indication: ANTI-INFECTIVE THERAPY
     Dosage: UNK
     Route: 048
     Dates: start: 20110101
  18. FENTANYL CITRATE [Concomitant]
     Dosage: UNK
     Route: 061
     Dates: start: 20100120
  19. FLUCONAZOLE [Concomitant]
     Dosage: UNK
     Route: 048
     Dates: start: 20111013, end: 20111017
  20. NILSTAT                            /00036501/ [Concomitant]
     Dosage: UNK
     Route: 048
     Dates: start: 20111031, end: 20111111
  21. MAGNESIUM [Concomitant]
     Dosage: UNK
     Route: 042
     Dates: start: 20111102
  22. ESOMEPRAZOLE [Concomitant]
     Indication: ANTACID THERAPY
     Dosage: 40 MG, UNK
     Route: 048
     Dates: start: 20100115
  23. ALLOPURINOL [Concomitant]
     Indication: ANTACID THERAPY
     Dosage: UNK
     Route: 048
     Dates: start: 20110930, end: 20111024
  24. GABAPENTIN [Concomitant]
     Dosage: UNK
     Route: 048
     Dates: start: 20111031, end: 20111103
  25. SERTRALINE HYDROCHLORIDE [Concomitant]
     Indication: DEPRESSION
     Dosage: UNK
     Route: 048
     Dates: start: 20100517
  26. POTASSIUM [Concomitant]
     Dosage: UNK
     Route: 048
     Dates: start: 20111030, end: 20111031
  27. KYTRIL [Concomitant]
     Indication: ANTIEMETIC SUPPORTIVE CARE
     Dosage: UNK
     Route: 042
     Dates: start: 20110930
  28. PHOSPHATE                          /01318702/ [Concomitant]
     Dosage: UNK
     Route: 042
     Dates: start: 20111101, end: 20111102
  29. VORICONAZOLE [Concomitant]
     Dosage: UNK
     Route: 042
     Dates: start: 20111030, end: 20111108
  30. CALCIUM CARBONATE [Concomitant]
     Indication: SUPPLEMENTATION THERAPY
     Dosage: UNK
     Route: 048
     Dates: start: 20111030
  31. POTASSIUM [Concomitant]
     Dosage: UNK
     Route: 042
     Dates: start: 20111030, end: 20111108
  32. FLUCONAZOLE [Concomitant]
     Indication: ANTIFUNGAL TREATMENT
     Dosage: UNK
     Route: 042
     Dates: start: 20111012, end: 20111013
  33. POTASSIUM [Concomitant]
     Indication: SUPPLEMENTATION THERAPY
     Dosage: UNK
     Route: 048
     Dates: start: 20110926
  34. VALTREX [Concomitant]
     Indication: ANTIVIRAL PROPHYLAXIS
     Dosage: UNK
     Route: 048
     Dates: start: 20110930
  35. NILSTAT                            /00036501/ [Concomitant]
     Indication: ANTIFUNGAL TREATMENT
     Dosage: UNK
     Route: 048
     Dates: start: 20111012, end: 20111024
  36. VORICONAZOLE [Concomitant]
     Indication: ANTIFUNGAL PROPHYLAXIS
     Dosage: UNK
     Route: 048
     Dates: start: 20111017
  37. ASPIRIN [Concomitant]
     Indication: PROPHYLAXIS
     Dosage: UNK
     Route: 048
     Dates: start: 20110117, end: 20111007

REACTIONS (3)
  - CLOSTRIDIUM DIFFICILE COLITIS [None]
  - ORAL CANDIDIASIS [None]
  - INFECTION [None]
